FAERS Safety Report 19475666 (Version 1)
Quarter: 2021Q2

REPORT INFORMATION
  Report Type: Report from Study
  Country: NL (occurrence: NL)
  Receive Date: 20210630
  Receipt Date: 20210630
  Transmission Date: 20210717
  Serious: Yes (Other)
  Sender: FDA-Public Use
  Company Number: NVSC2019NL024241

PATIENT
  Sex: Female

DRUGS (1)
  1. GILENYA [Suspect]
     Active Substance: FINGOLIMOD HYDROCHLORIDE
     Indication: MULTIPLE SCLEROSIS
     Dosage: 0.5 MG, QD
     Route: 048

REACTIONS (11)
  - Negativism [Unknown]
  - Inappropriate schedule of product administration [Unknown]
  - Illness [Unknown]
  - Visual impairment [Recovering/Resolving]
  - Nausea [Unknown]
  - Photopsia [Recovering/Resolving]
  - Optic neuritis [Unknown]
  - Aura [Recovering/Resolving]
  - Migraine [Unknown]
  - Headache [Recovering/Resolving]
  - Hypertension [Unknown]
